FAERS Safety Report 6747818-8 (Version None)
Quarter: 2010Q2

REPORT INFORMATION
  Report Type: 
  Country: None (occurrence: None)
  Receive Date: 20100528
  Receipt Date: 20100517
  Transmission Date: 20101027
  Serious: Yes (Hospitalization, Other)
  Sender: FDA-Public Use
  Company Number: PHEH2009US10839

PATIENT
  Sex: Male
  Weight: 53.061 kg

DRUGS (22)
  1. NEORAL [Suspect]
     Indication: RENAL TRANSPLANT
     Dosage: 125 MG, BID
     Route: 048
     Dates: start: 19950101, end: 20091101
  2. CRESTOR [Concomitant]
     Dosage: 10 MG
     Route: 048
  3. SPIRONOLACTONE [Concomitant]
     Dosage: 25 MG, ONCE/SINGLE
     Route: 048
  4. PROTONIX [Concomitant]
  5. PACERONE [Concomitant]
     Dosage: 200 MG, DAILY
  6. MAGNESIUM [Concomitant]
     Dosage: 400 MG,
  7. CELEXA [Concomitant]
     Dosage: 40 MG,
     Route: 048
  8. RAMIPRIL [Concomitant]
     Dosage: 10 MG,
     Route: 048
  9. LOPID [Concomitant]
  10. ALLOPURINOL [Concomitant]
     Dosage: 50 MG,
     Route: 048
  11. FUROSEMIDE [Concomitant]
     Dosage: 40 MG,
     Route: 048
  12. PREDNISONE TAB [Concomitant]
     Dosage: 7.5 MG
     Route: 048
  13. WARFARIN SODIUM [Concomitant]
  14. ZEMPLAR [Concomitant]
  15. VITAMIN D [Concomitant]
     Dosage: 50000 U, QW
  16. GEMFIBROZIL [Concomitant]
     Dosage: 600 MG, BID
  17. TRAMADOL HYDROCHLORIDE [Concomitant]
     Dosage: 50 MG, QID, PRN
  18. NASONEX [Concomitant]
     Dosage: ONE SPRAY IN EACH NOSTRIL DAILY
     Route: 045
  19. SYMBICORT [Concomitant]
     Dosage: 160/4.5 I PUFF BID
  20. CARVEDILOL [Concomitant]
     Dosage: 25 MG, BID
     Route: 048
  21. CITALOPRAM [Concomitant]
     Dosage: 40 MG
     Route: 048
  22. COUMADIN [Concomitant]

REACTIONS (18)
  - ABDOMINAL DISTENSION [None]
  - BRADYCARDIA [None]
  - CARDIAC FAILURE CONGESTIVE [None]
  - CHEST DISCOMFORT [None]
  - CHRONIC ALLOGRAFT NEPHROPATHY [None]
  - COUGH [None]
  - DIASTOLIC DYSFUNCTION [None]
  - DYSPNOEA [None]
  - DYSPNOEA PAROXYSMAL NOCTURNAL [None]
  - ECCHYMOSIS [None]
  - FATIGUE [None]
  - MALAISE [None]
  - OEDEMA PERIPHERAL [None]
  - ORTHOPNOEA [None]
  - PETECHIAE [None]
  - PULMONARY OEDEMA [None]
  - RENAL FAILURE ACUTE [None]
  - WEIGHT INCREASED [None]
